FAERS Safety Report 7082890-X (Version None)
Quarter: 2010Q4

REPORT INFORMATION
  Report Type: 
  Country: None (occurrence: None)
  Receive Date: 20101104
  Receipt Date: 20101022
  Transmission Date: 20110411
  Serious: Yes (Other)
  Sender: FDA-Public Use
  Company Number: PHHY2010US69850

PATIENT
  Sex: Female
  Weight: 167 kg

DRUGS (3)
  1. FEMARA [Suspect]
     Dosage: 2.5 MG DAILY
     Route: 048
     Dates: start: 20100701
  2. ANTIHYPERTENSIVES [Concomitant]
  3. ASPIRIN [Concomitant]
     Dosage: UNK

REACTIONS (2)
  - CATARACT OPERATION [None]
  - INTRAOCULAR LENS IMPLANT [None]
